FAERS Safety Report 4865412-0 (Version None)
Quarter: 2005Q4

REPORT INFORMATION
  Report Type: 
  Country: None (occurrence: None)
  Receive Date: 20051219
  Receipt Date: 20051214
  Transmission Date: 20060501
  Serious: Yes (Hospitalization)
  Sender: FDA-Public Use
  Company Number: LTI2005A00303

PATIENT
  Age: 10 Year
  Sex: Female

DRUGS (1)
  1. ENANTONE LP          (LEUPROLIDE ACETATE) [Suspect]
     Indication: PRECOCIOUS PUBERTY
     Dosage: 11.25 MG (11.25 MG 1 IN 3 M)
     Route: 030
     Dates: start: 20041230, end: 20050630

REACTIONS (1)
  - HENOCH-SCHONLEIN PURPURA [None]
